FAERS Safety Report 15784889 (Version 1)
Quarter: 2019Q1

REPORT INFORMATION
  Report Type: Spontaneous
  Country: US (occurrence: US)
  Receive Date: 20190103
  Receipt Date: 20190103
  Transmission Date: 20190417
  Serious: Yes (Other)
  Sender: FDA-Public Use
  Company Number: US-TORRENT-00007352

PATIENT
  Sex: Female
  Weight: 61 kg

DRUGS (4)
  1. CARVEDILOL. [Concomitant]
     Active Substance: CARVEDILOL
     Indication: MYOCARDIAL INFARCTION
     Dosage: UNKNOWN
     Route: 048
     Dates: start: 2013
  2. FLONASE SPRAY [Concomitant]
     Indication: MULTIPLE ALLERGIES
     Dosage: UNKNOWN
  3. LOSARTAN POTASSIUM. [Suspect]
     Active Substance: LOSARTAN POTASSIUM
     Indication: HYPERTENSION
     Dosage: PILL IMPRINT 100|115
     Route: 048
     Dates: start: 2013
  4. AMLODIPINE BESYLATE. [Concomitant]
     Active Substance: AMLODIPINE BESYLATE
     Indication: HYPERTENSION
     Dosage: PILL DESCRIPTION: 112 SINGLE SIDE, ROUND WHITE PILL; WAS A DIAGONAL SHAPED PILL ONCE BEFORE THIS.
     Dates: start: 2013

REACTIONS (1)
  - Renal impairment [Not Recovered/Not Resolved]
